FAERS Safety Report 9910740 (Version 2)
Quarter: 2014Q1

REPORT INFORMATION
  Report Type: Spontaneous
  Country: US (occurrence: US)
  Receive Date: 20140219
  Receipt Date: 20140219
  Transmission Date: 20141002
  Serious: No
  Sender: FDA-Public Use
  Company Number: US-GILEAD-2012-0053631

PATIENT
  Age: 56 Year
  Sex: Female

DRUGS (2)
  1. LETAIRIS [Suspect]
     Indication: PULMONARY HYPERTENSION
     Dosage: 10 MG, UNK
     Route: 048
     Dates: start: 20090220
  2. REMODULIN [Suspect]

REACTIONS (5)
  - Arthralgia [Unknown]
  - Cold sweat [Unknown]
  - Feeling abnormal [Unknown]
  - Myalgia [Unknown]
  - Hot flush [Unknown]
